FAERS Safety Report 4674388-0 (Version None)
Quarter: 2005Q2

REPORT INFORMATION
  Report Type: 
  Country: None (occurrence: None)
  Receive Date: 20050524
  Receipt Date: 20050518
  Transmission Date: 20051028
  Serious: No
  Sender: FDA-Public Use
  Company Number: MED000165

PATIENT
  Age: 16 Year
  Sex: Male

DRUGS (1)
  1. LACTATED RINGER'S [Suspect]
     Dosage: 30 CC; QH; INTRAVENOUS
     Route: 042
     Dates: start: 20050511, end: 20050511

REACTIONS (2)
  - INFUSION RELATED REACTION [None]
  - URTICARIA [None]
